FAERS Safety Report 19179022 (Version 10)
Quarter: 2022Q1

REPORT INFORMATION
  Report Type: Report from Study
  Country: CR (occurrence: CR)
  Receive Date: 20210426
  Receipt Date: 20220307
  Transmission Date: 20220423
  Serious: Yes (Other)
  Sender: FDA-Public Use
  Company Number: NVSC2020CR220038

PATIENT
  Sex: Female

DRUGS (5)
  1. SECUKINUMAB [Suspect]
     Active Substance: SECUKINUMAB
     Indication: Ankylosing spondylitis
     Dosage: 150 MG, QMO
     Route: 058
     Dates: start: 20200604
  2. SECUKINUMAB [Suspect]
     Active Substance: SECUKINUMAB
     Dosage: UNK
     Route: 065
     Dates: start: 202008
  3. SECUKINUMAB [Suspect]
     Active Substance: SECUKINUMAB
     Dosage: 150 MG, QMO
     Route: 058
  4. FLUCONAZOLE [Suspect]
     Active Substance: FLUCONAZOLE
     Indication: Product used for unknown indication
     Dosage: UNK
     Route: 065
  5. ACETAMINOPHEN\TRAMADOL HYDROCHLORIDE [Suspect]
     Active Substance: ACETAMINOPHEN\TRAMADOL HYDROCHLORIDE
     Indication: Arthralgia
     Dosage: UNK
     Route: 065

REACTIONS (36)
  - Drug-induced liver injury [Unknown]
  - Rotavirus infection [Unknown]
  - Polymerase chain reaction positive [Unknown]
  - Illness [Unknown]
  - Ovarian cyst [Unknown]
  - Pain [Recovering/Resolving]
  - Spinal pain [Not Recovered/Not Resolved]
  - Fear [Unknown]
  - Anxiety [Unknown]
  - C-reactive protein increased [Unknown]
  - Seasonal allergy [Unknown]
  - Eye pruritus [Recovering/Resolving]
  - Swelling [Recovering/Resolving]
  - Dyspnoea [Unknown]
  - Cough [Recovering/Resolving]
  - Rhinitis [Recovering/Resolving]
  - Bronchial disorder [Recovering/Resolving]
  - Drug hypersensitivity [Unknown]
  - Tendonitis [Unknown]
  - Bursitis [Unknown]
  - Nerve compression [Unknown]
  - Arthralgia [Not Recovered/Not Resolved]
  - Neck pain [Not Recovered/Not Resolved]
  - Joint range of motion decreased [Unknown]
  - Somnolence [Unknown]
  - Malaise [Unknown]
  - Bacterial infection [Recovering/Resolving]
  - Oral candidiasis [Not Recovered/Not Resolved]
  - Choking sensation [Recovering/Resolving]
  - Inflammation [Unknown]
  - Throat irritation [Unknown]
  - Oral discomfort [Unknown]
  - Pain in extremity [Not Recovered/Not Resolved]
  - Hypoaesthesia [Unknown]
  - Arthritis [Unknown]
  - Inappropriate schedule of product administration [Unknown]
